FAERS Safety Report 15593570 (Version 1)
Quarter: 2018Q4

REPORT INFORMATION
  Report Type: Spontaneous
  Country: FR (occurrence: FR)
  Receive Date: 20181106
  Receipt Date: 20181106
  Transmission Date: 20190205
  Serious: Yes (Hospitalization)
  Sender: FDA-Public Use
  Company Number: FR-NAPPMUNDI-GBR-2018-0061131

PATIENT
  Age: 72 Year
  Sex: Male
  Weight: 49 kg

DRUGS (3)
  1. OXYCODONE                          /00045603/ [Suspect]
     Active Substance: OXYCODONE
     Indication: PAIN
     Dosage: 40 MG, DAILY
     Route: 048
     Dates: start: 20180806, end: 20180828
  2. OXYNORMORO [Suspect]
     Active Substance: OXYCODONE HYDROCHLORIDE
     Indication: PAIN
     Dosage: 5 MG, DAILY (STRENGHT 5MG)
     Route: 048
     Dates: start: 20180806, end: 20180828
  3. OXYNORM [Suspect]
     Active Substance: OXYCODONE HYDROCHLORIDE
     Indication: PAIN
     Dosage: UNK (NP)
     Route: 042
     Dates: start: 20180719

REACTIONS (3)
  - Faecaloma [Recovered/Resolved]
  - Urinary retention [Recovered/Resolved]
  - Acute kidney injury [Recovered/Resolved]

NARRATIVE: CASE EVENT DATE: 20180814
